FAERS Safety Report 9853850 (Version 1)
Quarter: 2014Q1

REPORT INFORMATION
  Report Type: Spontaneous
  Country: US (occurrence: US)
  Receive Date: 20140129
  Receipt Date: 20140129
  Transmission Date: 20141002
  Serious: No
  Sender: FDA-Public Use
  Company Number: US-TEVA-459267USA

PATIENT
  Age: 32 Year
  Sex: Female
  Weight: 86.26 kg

DRUGS (1)
  1. PARAGARD 380A [Suspect]
     Indication: CONTRACEPTION
     Route: 015
     Dates: start: 20130805, end: 20131230

REACTIONS (3)
  - Pain [Recovered/Resolved]
  - Pelvic pain [Recovered/Resolved]
  - Menorrhagia [Recovered/Resolved]
